FAERS Safety Report 6885093-4 (Version None)
Quarter: 2010Q3

REPORT INFORMATION
  Report Type: 
  Country: None (occurrence: None)
  Receive Date: 20100729
  Receipt Date: 20100728
  Transmission Date: 20110219
  Serious: Yes (Death, Disabling)
  Sender: FDA-Public Use
  Company Number: JP-ELI_LILLY_AND_COMPANY-JP200902002885

PATIENT
  Sex: Male
  Weight: 59 kg

DRUGS (5)
  1. GEMZAR [Suspect]
     Indication: BLADDER CANCER STAGE IV
     Dosage: 1680 MG, OTHER
     Route: 042
     Dates: start: 20080918, end: 20081101
  2. CISPLATIN [Concomitant]
     Indication: BLADDER CANCER STAGE IV
     Dosage: 44.2 MG, OTHER
     Route: 042
     Dates: start: 20080919, end: 20081101
  3. TRYPTANOL /00002202/ [Concomitant]
     Indication: PAIN
     Dosage: 10 MG, DAILY (1/D)
     Route: 048
  4. TAKEPRON [Concomitant]
     Indication: PROPHYLAXIS
     Dosage: 30 MG, DAILY (1/D)
     Route: 048
  5. DUROTEP [Concomitant]
     Indication: PAIN
     Dosage: 12.6 MG, OTHER
     Route: 062

REACTIONS (2)
  - MALIGNANT NEOPLASM PROGRESSION [None]
  - REVERSIBLE POSTERIOR LEUKOENCEPHALOPATHY SYNDROME [None]
